FAERS Safety Report 9681049 (Version 3)
Quarter: 2014Q1

REPORT INFORMATION
  Report Type: Spontaneous
  Country: JP (occurrence: JP)
  Receive Date: 20131111
  Receipt Date: 20140123
  Transmission Date: 20141002
  Serious: Yes (Other)
  Sender: FDA-Public Use
  Company Number: JP-PFIZER INC-2013320397

PATIENT
  Age: 31 Year
  Sex: Male

DRUGS (1)
  1. ARGATROBAN [Suspect]
     Indication: VENOUS OCCLUSION
     Dosage: UNK
     Route: 042

REACTIONS (2)
  - Haemorrhage [Unknown]
  - Eosinophilia [Recovering/Resolving]
